FAERS Safety Report 5329811-5 (Version None)
Quarter: 2007Q2

REPORT INFORMATION
  Report Type: 
  Country: None (occurrence: None)
  Receive Date: 20070517
  Receipt Date: 20070517
  Transmission Date: 20071010
  Serious: Yes (Life-Threatening, Hospitalization)
  Sender: FDA-Public Use
  Company Number: None

PATIENT
  Age: 44 Year
  Sex: Male
  Weight: 83.9154 kg

DRUGS (1)
  1. LYRICA [Suspect]
     Indication: TENSION HEADACHE
     Dosage: 100 MG 3 TIMES DAILY PO
     Route: 048
     Dates: start: 20051201, end: 20061130

REACTIONS (6)
  - ANXIETY [None]
  - DRUG DEPENDENCE [None]
  - IMPAIRED WORK ABILITY [None]
  - SUICIDAL IDEATION [None]
  - TENSION HEADACHE [None]
  - WEIGHT INCREASED [None]
